FAERS Safety Report 23644200 (Version 1)
Quarter: 2024Q1

REPORT INFORMATION
  Report Type: Spontaneous
  Country: US (occurrence: None)
  Receive Date: 20240318
  Receipt Date: 20240318
  Transmission Date: 20240409
  Serious: Yes (Hospitalization)
  Sender: FDA-Public Use
  Company Number: None

PATIENT
  Sex: Female

DRUGS (4)
  1. OPSUMIT [Suspect]
     Active Substance: MACITENTAN
     Indication: Pulmonary arterial hypertension
     Dosage: FREQUENCY : DAILY;?
     Route: 048
     Dates: start: 202302
  2. OTEZLA [Concomitant]
  3. TYVASO DPI MAIN KIT PWD [Concomitant]
  4. TADALAFIL [Concomitant]

REACTIONS (2)
  - Anaemia [None]
  - Nasopharyngitis [None]
